FAERS Safety Report 6821327-X (Version None)
Quarter: 2010Q3

REPORT INFORMATION
  Report Type: 
  Country: None (occurrence: None)
  Receive Date: 20100707
  Receipt Date: 20080617
  Transmission Date: 20110219
  Serious: No
  Sender: FDA-Public Use
  Company Number: US-PFIZER INC-2008050809

PATIENT
  Sex: Female
  Weight: 63.636 kg

DRUGS (2)
  1. ZOLOFT [Suspect]
     Indication: ANXIETY
     Route: 048
     Dates: start: 20080523, end: 20080616
  2. PARA-SELTZER [Concomitant]

REACTIONS (2)
  - CONTUSION [None]
  - EAR PAIN [None]
